FAERS Safety Report 15692204 (Version 1)
Quarter: 2018Q4

REPORT INFORMATION
  Report Type: Spontaneous
  Country: KR (occurrence: KR)
  Receive Date: 20181205
  Receipt Date: 20181205
  Transmission Date: 20190205
  Serious: Yes (Hospitalization)
  Sender: FDA-Public Use
  Company Number: KR-MYLANLABS-2018M1088147

PATIENT
  Age: 35 Year
  Sex: Male

DRUGS (1)
  1. WARFARIN [Suspect]
     Active Substance: WARFARIN
     Indication: PRODUCT USED FOR UNKNOWN INDICATION
     Dosage: TAKING FOR 16 YEARS
     Route: 065

REACTIONS (5)
  - Optic neuropathy [Recovering/Resolving]
  - Visual acuity reduced [Recovering/Resolving]
  - Optic nerve compression [Recovering/Resolving]
  - Haematoma [Recovering/Resolving]
  - Epistaxis [Unknown]
